FAERS Safety Report 13451788 (Version 1)
Quarter: 2017Q2

REPORT INFORMATION
  Report Type: Spontaneous
  Country: US (occurrence: US)
  Receive Date: 20170418
  Receipt Date: 20170418
  Transmission Date: 20170830
  Serious: Yes (Other)
  Sender: FDA-Public Use
  Company Number: None

PATIENT
  Age: 73 Year
  Sex: Female
  Weight: 120.76 kg

DRUGS (7)
  1. VITAMIN D3 [Concomitant]
     Active Substance: CHOLECALCIFEROL
  2. LOW DOSE ASPRIN [Concomitant]
     Active Substance: ASPIRIN
  3. MELOXICAM 15 MG GENERIC FOR MOBIC [Suspect]
     Active Substance: MELOXICAM
     Indication: EXOSTOSIS
     Dosage: ONE A DAY WITH FOOD ONCE A DAY BY MOUTH WITH FOOD
     Route: 048
     Dates: start: 20170125, end: 20170309
  4. MELOXICAM 15 MG GENERIC FOR MOBIC [Suspect]
     Active Substance: MELOXICAM
     Indication: MUSCULOSKELETAL PAIN
     Dosage: ONE A DAY WITH FOOD ONCE A DAY BY MOUTH WITH FOOD
     Route: 048
     Dates: start: 20170125, end: 20170309
  5. WOMEN MULTI VITAMIN [Concomitant]
  6. LEVOTHYROXINE. [Concomitant]
     Active Substance: LEVOTHYROXINE
  7. VITAMIN E [Concomitant]
     Active Substance: .ALPHA.-TOCOPHEROL

REACTIONS (4)
  - Headache [None]
  - Abdominal pain upper [None]
  - Diarrhoea [None]
  - Chest pain [None]

NARRATIVE: CASE EVENT DATE: 20170204
